FAERS Safety Report 11663368 (Version 1)
Quarter: 2015Q4

REPORT INFORMATION
  Report Type: Spontaneous
  Country: US (occurrence: US)
  Receive Date: 20151027
  Receipt Date: 20151027
  Transmission Date: 20160304
  Serious: Yes (Other)
  Sender: FDA-Public Use
  Company Number: US-BAYER-2015-449162

PATIENT
  Age: 24 Year
  Sex: Female

DRUGS (1)
  1. MIRENA [Suspect]
     Active Substance: LEVONORGESTREL
     Indication: CONTRACEPTION
     Dosage: 20 MCG/24HR,CONT
     Route: 015
     Dates: start: 2013

REACTIONS (8)
  - Embedded device [None]
  - Erythema [None]
  - Back pain [None]
  - Vulvovaginal pain [None]
  - Device difficult to use [None]
  - Headache [None]
  - Swelling face [None]
  - Genital haemorrhage [None]
